FAERS Safety Report 7018405-1 (Version None)
Quarter: 2010Q3

REPORT INFORMATION
  Report Type: 
  Country: None (occurrence: None)
  Receive Date: 20100928
  Receipt Date: 20100916
  Transmission Date: 20110219
  Serious: Yes (Hospitalization)
  Sender: FDA-Public Use
  Company Number: PHHY2010US61844

PATIENT
  Sex: Male

DRUGS (1)
  1. RECLAST [Suspect]
     Dosage: UNK
     Dates: start: 20100915

REACTIONS (5)
  - ACIDOSIS [None]
  - BLOOD POTASSIUM DECREASED [None]
  - DRUG ADMINISTRATION ERROR [None]
  - PYREXIA [None]
  - TACHYCARDIA [None]
